FAERS Safety Report 9234338 (Version 4)
Quarter: 2013Q3

REPORT INFORMATION
  Report Type: Spontaneous
  Country: JP (occurrence: JP)
  Receive Date: 20130416
  Receipt Date: 20130802
  Transmission Date: 20140515
  Serious: Yes (Hospitalization, Other)
  Sender: FDA-Public Use
  Company Number: JP-ASTRAZENECA-2013SE24435

PATIENT
  Age: 37 Year
  Sex: Male

DRUGS (11)
  1. SEROQUEL [Suspect]
     Indication: SCHIZOPHRENIA
     Dosage: 300 MG AFTER LUNCH AND 400 MG AFTER DINNER
     Route: 048
     Dates: start: 201201
  2. RISPERDAL [Concomitant]
     Route: 048
     Dates: start: 201201
  3. AMLODIPINE [Concomitant]
     Dates: start: 201201
  4. DIOVAN [Concomitant]
     Dates: start: 201201
  5. DEPAKENE-R [Concomitant]
     Dates: start: 201201
  6. SODIUM VALPROATE [Concomitant]
     Dates: start: 201201
  7. L-CARTIN [Concomitant]
     Dates: start: 201201
  8. MAGMITT [Concomitant]
     Dates: start: 201201
  9. FLUNITRAZEPAM [Concomitant]
     Dates: start: 201201
  10. YODEL-S [Concomitant]
     Dates: start: 201206
  11. SODIUM PICOSULFATE [Concomitant]
     Route: 048

REACTIONS (6)
  - Renal haemorrhage [Recovered/Resolved]
  - Hyponatraemia [Recovering/Resolving]
  - Water intoxication [Unknown]
  - Urinary retention [Recovered/Resolved]
  - Constipation [Recovered/Resolved]
  - Pyrexia [Recovered/Resolved]
